FAERS Safety Report 5215466-7 (Version None)
Quarter: 2007Q1

REPORT INFORMATION
  Report Type: 
  Country: None (occurrence: None)
  Receive Date: 20070119
  Receipt Date: 20070119
  Transmission Date: 20070707
  Serious: Yes (Hospitalization, Disabling)
  Sender: FDA-Public Use
  Company Number: None

PATIENT
  Age: 77 Year
  Sex: Female
  Weight: 90 kg

DRUGS (2)
  1. TEMAZEPAM [Suspect]
     Indication: INSOMNIA
     Dosage: 2 AT NIGHT
     Dates: start: 20060501, end: 20061201
  2. DIAZEPAM [Suspect]
     Indication: ANXIETY
     Dosage: WHEN NEEDED DAYTIME
     Dates: start: 20060501, end: 20061201

REACTIONS (4)
  - ABASIA [None]
  - BACK PAIN [None]
  - POLLAKIURIA [None]
  - WALKING AID USER [None]
